FAERS Safety Report 9647231 (Version 1)
Quarter: 2013Q4

REPORT INFORMATION
  Report Type: Spontaneous
  Country: US (occurrence: US)
  Receive Date: 20131027
  Receipt Date: 20131027
  Transmission Date: 20140711
  Serious: Yes (Death, Other)
  Sender: FDA-Public Use
  Company Number: US-NAPPMUNDI-USA-2013-0105652

PATIENT
  Age: 20 Year
  Sex: Male

DRUGS (5)
  1. OXYCONTIN (NDA 22-272) [Suspect]
     Indication: DRUG ABUSE
     Dosage: UNK
     Dates: start: 20080211
  2. OPANA [Suspect]
     Indication: DRUG ABUSE
  3. ALPRAZOLAM [Suspect]
     Indication: DRUG ABUSE
     Dosage: UNK
     Dates: start: 20080211
  4. COCAINE [Suspect]
     Indication: DRUG ABUSE
  5. MARIJUANA [Suspect]
     Indication: DRUG ABUSE

REACTIONS (2)
  - Overdose [Fatal]
  - Substance abuse [Unknown]
